FAERS Safety Report 18832374 (Version 1)
Quarter: 2021Q1

REPORT INFORMATION
  Report Type: Spontaneous
  Country: FR (occurrence: FR)
  Receive Date: 20210203
  Receipt Date: 20210203
  Transmission Date: 20210419
  Serious: Yes (Other)
  Sender: FDA-Public Use
  Company Number: FR-TEVA-2021-FR-1875216

PATIENT
  Age: 63 Year
  Sex: Male
  Weight: 72 kg

DRUGS (3)
  1. RIMACTAN [Suspect]
     Active Substance: RIFAMPIN
     Indication: OSTEITIS
     Dosage: 1200 MG
     Route: 048
     Dates: start: 20201027, end: 20201123
  2. CLINDAMYCINE MYLAN [Suspect]
     Active Substance: CLINDAMYCIN
     Indication: OSTEITIS
     Dosage: 2400 MG
     Route: 048
     Dates: start: 20201027, end: 20201123
  3. FLUCONAZOLE. [Suspect]
     Active Substance: FLUCONAZOLE
     Indication: OSTEITIS
     Dosage: 400 MG
     Route: 048
     Dates: start: 20201027

REACTIONS (1)
  - Hepatocellular injury [Recovering/Resolving]

NARRATIVE: CASE EVENT DATE: 20201116
